FAERS Safety Report 24148911 (Version 3)
Quarter: 2024Q3

REPORT INFORMATION
  Report Type: Spontaneous
  Country: ZA (occurrence: ZA)
  Receive Date: 20240729
  Receipt Date: 20240822
  Transmission Date: 20241017
  Serious: Yes (Other)
  Sender: NOVARTIS
  Company Number: ZA-002147023-NVSC2024ZA142842

PATIENT
  Age: 73 Year
  Sex: Female

DRUGS (1)
  1. TRAVATAN [Suspect]
     Active Substance: TRAVOPROST
     Indication: Glaucoma
     Dosage: 1 DRP, QD (8 YEARS)
     Route: 047

REACTIONS (3)
  - Cerebrovascular accident [Unknown]
  - Muscular weakness [Unknown]
  - Product dose omission issue [Unknown]

NARRATIVE: CASE EVENT DATE: 20240709
